FAERS Safety Report 10265090 (Version 2)
Quarter: 2014Q3

REPORT INFORMATION
  Report Type: Spontaneous
  Country: GB (occurrence: GB)
  Receive Date: 20140627
  Receipt Date: 20140804
  Transmission Date: 20150326
  Serious: Yes (Other)
  Sender: FDA-Public Use
  Company Number: PHHY2014GB076582

PATIENT
  Age: 69 Year
  Sex: Male
  Weight: 101.61 kg

DRUGS (4)
  1. CANDESARTAN CILEXETIL. [Concomitant]
     Active Substance: CANDESARTAN CILEXETIL
     Indication: CARDIAC FAILURE
     Route: 048
     Dates: start: 201301
  2. BISOPROLOL [Suspect]
     Active Substance: BISOPROLOL
     Dosage: 5 MG, UNK
     Route: 048
     Dates: start: 201301
  3. BISOPROLOL [Suspect]
     Active Substance: BISOPROLOL
     Indication: CARDIAC FAILURE
     Dosage: 1.25 MG, UNK
     Dates: start: 2005
  4. ASPIRIN. [Concomitant]
     Active Substance: ASPIRIN
     Indication: CARDIAC FAILURE
     Dosage: 75 MG, UNK
     Dates: start: 201301

REACTIONS (6)
  - Skin discolouration [Not Recovered/Not Resolved]
  - Faecal incontinence [Not Recovered/Not Resolved]
  - Dry skin [Not Recovered/Not Resolved]
  - Myalgia [Not Recovered/Not Resolved]
  - Incontinence [Not Recovered/Not Resolved]
  - Stasis dermatitis [Not Recovered/Not Resolved]
